FAERS Safety Report 15309269 (Version 2)
Quarter: 2018Q4

REPORT INFORMATION
  Report Type: Spontaneous
  Country: CA (occurrence: CA)
  Receive Date: 20180823
  Receipt Date: 20180921
  Transmission Date: 20190204
  Serious: No
  Sender: FDA-Public Use
  Company Number: CA-IGSA-SR10006131

PATIENT
  Age: 81 Year
  Sex: Female
  Weight: 79.5 kg

DRUGS (16)
  1. PANTOPRAZOLE [Concomitant]
     Active Substance: PANTOPRAZOLE
  2. SALBUTAMOL [Concomitant]
     Active Substance: ALBUTEROL
  3. ALBUMIN (HUMAN) [Suspect]
     Active Substance: ALBUMIN HUMAN
     Indication: LIVER DISORDER
     Dosage: 5 G, TOTAL
     Route: 042
     Dates: start: 20180330, end: 20180330
  4. CHOLECALCIFEROL [Concomitant]
     Active Substance: CHOLECALCIFEROL
  5. LEVOTHYROXINE. [Concomitant]
     Active Substance: LEVOTHYROXINE
  6. ACETAMINOPHEN. [Concomitant]
     Active Substance: ACETAMINOPHEN
  7. FERROUS FUMARATE [Concomitant]
     Active Substance: FERROUS FUMARATE
  8. LACTULOSE. [Concomitant]
     Active Substance: LACTULOSE
  9. ISONIAZID. [Concomitant]
     Active Substance: ISONIAZID
  10. HYDROMORPHONE [Concomitant]
     Active Substance: HYDROMORPHONE
  11. LASIX [Concomitant]
     Active Substance: FUROSEMIDE
  12. INSULIN LISPRO [Concomitant]
     Active Substance: INSULIN LISPRO
  13. RIFAMPIN. [Concomitant]
     Active Substance: RIFAMPIN
  14. LINAGLIPTIN [Concomitant]
     Active Substance: LINAGLIPTIN
  15. PREGABALIN. [Concomitant]
     Active Substance: PREGABALIN
  16. PYRIDOXINE [Concomitant]
     Active Substance: PYRIDOXINE

REACTIONS (5)
  - Body temperature increased [Recovering/Resolving]
  - Hypotension [Recovering/Resolving]
  - Rash [Recovering/Resolving]
  - Pruritus [Recovering/Resolving]
  - Flushing [Recovering/Resolving]

NARRATIVE: CASE EVENT DATE: 20180330
